FAERS Safety Report 5321446-3 (Version None)
Quarter: 2007Q2

REPORT INFORMATION
  Report Type: 
  Country: None (occurrence: None)
  Receive Date: 20070510
  Receipt Date: 20070507
  Transmission Date: 20071010
  Serious: Yes (Hospitalization)
  Sender: FDA-Public Use
  Company Number: A0650512A

PATIENT
  Sex: Male
  Weight: 2.7 kg

DRUGS (3)
  1. BUPROPION HYDROCHLORIDE [Suspect]
     Dates: end: 20060804
  2. LAMOTRIGINE [Suspect]
     Indication: BIPOLAR DISORDER
     Dosage: 50MG PER DAY
     Dates: end: 20060804
  3. XANAX [Concomitant]
     Dosage: 1MG PER DAY
     Dates: end: 20060727

REACTIONS (1)
  - NEONATAL ASPIRATION [None]
